FAERS Safety Report 9135280 (Version 1)
Quarter: 2013Q1

REPORT INFORMATION
  Report Type: Spontaneous
  Country: US (occurrence: US)
  Receive Date: 20130304
  Receipt Date: 20130304
  Transmission Date: 20140127
  Serious: No
  Sender: FDA-Public Use
  Company Number: US-ENDO PHARMACEUTICALS INC.-ENDC20110063

PATIENT
  Sex: Male
  Weight: 51.3 kg

DRUGS (1)
  1. ENDOCET [Suspect]
     Indication: PRODUCT USED FOR UNKNOWN INDICATION
     Dosage: UNKNOWN
     Route: 048

REACTIONS (6)
  - Renal pain [Unknown]
  - Renal function test abnormal [Unknown]
  - Drug administration error [Unknown]
  - Abdominal pain upper [Unknown]
  - Hepatic pain [Unknown]
  - Malaise [Unknown]
